FAERS Safety Report 6153164-6 (Version None)
Quarter: 2009Q2

REPORT INFORMATION
  Report Type: 
  Country: None (occurrence: None)
  Receive Date: 20090413
  Receipt Date: 20090401
  Transmission Date: 20091009
  Serious: Yes (Hospitalization)
  Sender: FDA-Public Use
  Company Number: BR-ELI_LILLY_AND_COMPANY-BR200904000403

PATIENT
  Sex: Female
  Weight: 69 kg

DRUGS (3)
  1. FORTEO [Suspect]
     Indication: OSTEOPOROSIS
     Dosage: UNK, DAILY (1/D)
     Route: 058
     Dates: start: 20080201
  2. ALENDRONATE SODIUM [Concomitant]
     Indication: OSTEOPOROSIS
     Dosage: 70 MG, WEEKLY (1/W)
     Route: 065
  3. CALCIUM D [Concomitant]
     Indication: OSTEOPOROSIS
     Dosage: 600 MG, 3/W
     Route: 065

REACTIONS (4)
  - INFLAMMATION [None]
  - JOINT EFFUSION [None]
  - LOWER LIMB FRACTURE [None]
  - NEPHROLITHIASIS [None]
